FAERS Safety Report 16459022 (Version 1)
Quarter: 2019Q2

REPORT INFORMATION
  Report Type: Spontaneous
  Country: US (occurrence: US)
  Receive Date: 20190620
  Receipt Date: 20190620
  Transmission Date: 20190711
  Serious: No
  Sender: FDA-Public Use
  Company Number: US-THERAPEUTICSMD-2019TMD00959

PATIENT
  Age: 62 Year
  Sex: Female
  Weight: 58.96 kg

DRUGS (11)
  1. IMVEXXY [Suspect]
     Active Substance: ESTRADIOL
     Indication: VAGINAL DISORDER
     Dosage: 4 ?G, 1X/DAY BEFORE BED
     Route: 067
     Dates: start: 20190510
  2. NEXIUM [Concomitant]
     Active Substance: ESOMEPRAZOLE MAGNESIUM
  3. MULTIVITAMIN [Concomitant]
     Active Substance: VITAMINS
  4. CHINESE HERBS [Concomitant]
     Active Substance: HERBALS
     Dosage: UNK
  5. TOPIRAMATE. [Concomitant]
     Active Substance: TOPIRAMATE
  6. MAGNESIUM [Concomitant]
     Active Substance: MAGNESIUM
  7. IMVEXXY [Suspect]
     Active Substance: ESTRADIOL
     Indication: VULVOVAGINAL DRYNESS
  8. OMEGAS [Concomitant]
  9. UBIQUINOL [Concomitant]
     Active Substance: UBIQUINOL
  10. IMIPRAMINE [Concomitant]
     Active Substance: IMIPRAMINE
  11. VITAMIN D [Concomitant]
     Active Substance: VITAMIN D NOS

REACTIONS (5)
  - Urinary tract infection [Not Recovered/Not Resolved]
  - Product residue present [Recovered/Resolved]
  - Product use complaint [Recovered/Resolved]
  - Product administration error [Recovered/Resolved]
  - Drug ineffective for unapproved indication [Not Recovered/Not Resolved]

NARRATIVE: CASE EVENT DATE: 201905
